FAERS Safety Report 7915716-X (Version None)
Quarter: 2011Q4

REPORT INFORMATION
  Report Type: 
  Country: None (occurrence: None)
  Receive Date: 20111115
  Receipt Date: 20111107
  Transmission Date: 20120403
  Serious: Yes (Hospitalization)
  Sender: FDA-Public Use
  Company Number: JP-GLAXOSMITHKLINE-B0760590A

PATIENT
  Age: 59 Year
  Sex: Male
  Weight: 69 kg

DRUGS (13)
  1. LOSARTAN POTASSIUM [Concomitant]
     Route: 048
     Dates: start: 20081006
  2. ALLEGRA [Concomitant]
     Route: 048
     Dates: start: 20081023
  3. TIGASON [Concomitant]
     Route: 048
     Dates: start: 20081023
  4. ANTEBATE [Concomitant]
     Route: 061
     Dates: start: 20081023
  5. ISOSORBIDE MONONITRATE [Concomitant]
     Route: 048
     Dates: start: 20081006
  6. LIPITOR [Concomitant]
     Route: 048
     Dates: start: 20081006
  7. TACALCITOL [Concomitant]
     Route: 061
     Dates: start: 20081023
  8. CLOBETASOL PROPIONATE [Suspect]
     Indication: PSORIASIS
     Route: 061
     Dates: start: 20080701
  9. FAMOTIDINE [Concomitant]
     Route: 048
     Dates: start: 20081023
  10. ASPIRIN [Concomitant]
     Route: 048
     Dates: start: 20081006
  11. CARVEDILOL [Concomitant]
     Route: 048
     Dates: start: 20081006
  12. ATARAX [Concomitant]
     Route: 048
     Dates: start: 20081023
  13. RULID [Concomitant]
     Route: 048
     Dates: start: 20081023

REACTIONS (3)
  - DIABETES MELLITUS [None]
  - GLYCOSYLATED HAEMOGLOBIN INCREASED [None]
  - INCORRECT DRUG ADMINISTRATION DURATION [None]
